FAERS Safety Report 8906563 (Version 1)
Quarter: 2012Q4

REPORT INFORMATION
  Report Type: 
  Country: GR (occurrence: GR)
  Receive Date: 20121113
  Receipt Date: 20121113
  Transmission Date: 20130627
  Serious: Yes (Other)
  Sender: FDA-Public Use
  Company Number: GR-ROCHE-1152396

PATIENT

DRUGS (6)
  1. BEVACIZUMAB [Suspect]
     Indication: COLORECTAL CANCER METASTATIC
     Dosage: 7.5 mg/kg day 1 in Gr A, 5 mg/kg day 1 in Gr B
     Route: 065
  2. IRINOTECAN HYDROCHLORIDE [Suspect]
     Indication: COLORECTAL CANCER METASTATIC
     Dosage: 240 mg/m2 day 1 in Gr A and 180 mg/m2 day 1 in Gr B.
     Route: 065
  3. CAPECITABINE [Suspect]
     Indication: COLORECTAL CANCER METASTATIC
     Dosage: 1000 mg/m2 days 1 to 14 every 21 days cycle
     Route: 065
  4. LEUCOVORIN [Suspect]
     Indication: COLORECTAL CANCER METASTATIC
     Dosage: 2hr infusion  day 1
     Route: 065
  5. FLUOROURACIL [Suspect]
     Indication: COLORECTAL CANCER METASTATIC
     Dosage: day 1
     Route: 040
  6. FLUOROURACIL [Suspect]
     Route: 065

REACTIONS (28)
  - Leukopenia [Unknown]
  - Neutropenia [Unknown]
  - Febrile neutropenia [Unknown]
  - Thrombocytopenia [Unknown]
  - Infection [Unknown]
  - Pyrexia [Unknown]
  - Fatigue [Unknown]
  - Decreased appetite [Unknown]
  - Nausea [Unknown]
  - Vomiting [Unknown]
  - Mucosal inflammation [Unknown]
  - Anaemia [Unknown]
  - Diarrhoea [Unknown]
  - Cholinergic syndrome [Unknown]
  - Hiccups [Unknown]
  - Dysphonia [Unknown]
  - Hypertransaminasaemia [Unknown]
  - Palmar-plantar erythrodysaesthesia syndrome [Unknown]
  - Toxicity to various agents [Unknown]
  - Hypersensitivity [Unknown]
  - Electrolyte imbalance [Unknown]
  - Hypertension [Unknown]
  - Thrombosis [Unknown]
  - Pulmonary embolism [Unknown]
  - Syncope [Unknown]
  - Cardiotoxicity [Unknown]
  - Haemorrhage [Unknown]
  - Gastrointestinal toxicity [Unknown]
